FAERS Safety Report 10596164 (Version 2)
Quarter: 2014Q4

REPORT INFORMATION
  Report Type: Spontaneous
  Country: PT (occurrence: PT)
  Receive Date: 20141120
  Receipt Date: 20141120
  Transmission Date: 20150529
  Serious: Yes (Hospitalization, Other)
  Sender: FDA-Public Use
  Company Number: PT-ACTAVIS-2012-03961

PATIENT
  Age: 79 Year
  Sex: Female

DRUGS (2)
  1. SODIUM VALPROATE (UNKNOWN) [Suspect]
     Active Substance: VALPROATE SODIUM
     Indication: EPILEPSY
     Dosage: UNK
     Route: 065
  2. VANCOMYCIN (UNKNOWN) [Suspect]
     Active Substance: VANCOMYCIN
     Indication: BACTERIAL INFECTION

REACTIONS (1)
  - Toxic epidermal necrolysis [Recovered/Resolved]
